FAERS Safety Report 24782473 (Version 1)
Quarter: 2024Q4

REPORT INFORMATION
  Report Type: Spontaneous
  Country: CN (occurrence: CN)
  Receive Date: 20241227
  Receipt Date: 20241227
  Transmission Date: 20250115
  Serious: Yes (Other)
  Sender: PFIZER
  Company Number: CN-PFIZER INC-PV202400166924

PATIENT
  Age: 46 Year
  Sex: Male
  Weight: 75 kg

DRUGS (2)
  1. XYNTHA [Suspect]
     Active Substance: ANTIHEMOPHILIC FACTOR, HUMAN RECOMBINANT RESIDUES 743-1636 DELETED
     Dosage: 1000IUQOD
     Route: 042
     Dates: start: 20241025
  2. XYNTHA [Suspect]
     Active Substance: ANTIHEMOPHILIC FACTOR, HUMAN RECOMBINANT RESIDUES 743-1636 DELETED
     Dosage: 1000IUTIW
     Route: 042
     Dates: start: 20241211

REACTIONS (1)
  - Joint arthroplasty [Unknown]
